FAERS Safety Report 14668245 (Version 1)
Quarter: 2018Q1

REPORT INFORMATION
  Report Type: Spontaneous
  Country: US (occurrence: US)
  Receive Date: 20180321
  Receipt Date: 20180321
  Transmission Date: 20180509
  Serious: Yes (Disabling)
  Sender: FDA-Public Use
  Company Number: None

PATIENT
  Age: 20 Year
  Sex: Female
  Weight: 121.56 kg

DRUGS (2)
  1. NEXPLANON [Suspect]
     Active Substance: ETONOGESTREL
  2. INSULIN [Concomitant]
     Active Substance: INSULIN NOS

REACTIONS (7)
  - Depression [None]
  - Weight increased [None]
  - Vaginal haemorrhage [None]
  - Anxiety [None]
  - Mood swings [None]
  - Abdominal pain upper [None]
  - Breast discharge [None]

NARRATIVE: CASE EVENT DATE: 20160602
